FAERS Safety Report 12488192 (Version 1)
Quarter: 2016Q2

REPORT INFORMATION
  Report Type: Other
  Country: GB (occurrence: GB)
  Receive Date: 20160622
  Receipt Date: 20160622
  Transmission Date: 20160815
  Serious: Yes (Other)
  Sender: FDA-Public Use
  Company Number: GB-PERRIGO-16GB017064

PATIENT

DRUGS (1)
  1. LORATADINE. [Suspect]
     Active Substance: LORATADINE
     Indication: FOOD ALLERGY
     Dosage: 10 MG, QD
     Route: 048
     Dates: start: 20160518

REACTIONS (5)
  - Joint swelling [Recovered/Resolved]
  - Limb discomfort [Recovered/Resolved]
  - Fluid retention [Recovered/Resolved]
  - Musculoskeletal discomfort [Recovered/Resolved]
  - Peripheral swelling [Recovered/Resolved]
